FAERS Safety Report 8026611-2 (Version None)
Quarter: 2012Q1

REPORT INFORMATION
  Report Type: 
  Country: None (occurrence: None)
  Receive Date: 20120106
  Receipt Date: 20111227
  Transmission Date: 20120608
  Serious: No
  Sender: FDA-Public Use
  Company Number: US-BIOGENIDEC-2011BI043544

PATIENT
  Age: 43 Year
  Sex: Female

DRUGS (1)
  1. TYSABRI [Suspect]
     Indication: MULTIPLE SCLEROSIS
     Route: 042
     Dates: start: 20111013, end: 20111111

REACTIONS (9)
  - FLUSHING [None]
  - NAUSEA [None]
  - BALANCE DISORDER [None]
  - PRURITUS [None]
  - FATIGUE [None]
  - URTICARIA [None]
  - DIZZINESS [None]
  - DEPRESSION [None]
  - HEADACHE [None]
